FAERS Safety Report 4349250-3 (Version None)
Quarter: 2004Q2

REPORT INFORMATION
  Report Type: 
  Country: None (occurrence: None)
  Receive Date: 20040412
  Receipt Date: 20030314
  Transmission Date: 20050107
  Serious: Yes (Other)
  Sender: FDA-Public Use
  Company Number: HQWYE099017MAR03

PATIENT
  Age: 16 Year
  Sex: Male
  Weight: 70 kg

DRUGS (1)
  1. BENEFIX [Suspect]
     Indication: SURGERY
     Dosage: 5 CC OF 500 IU INFUSION, INTRAVENOUS
     Route: 042
     Dates: start: 20030314, end: 20030314

REACTIONS (2)
  - ANAPHYLACTIC REACTION [None]
  - VISION BLURRED [None]
